FAERS Safety Report 15623651 (Version 2)
Quarter: 2019Q1

REPORT INFORMATION
  Report Type: Spontaneous
  Country: US (occurrence: US)
  Receive Date: 20181115
  Receipt Date: 20190118
  Transmission Date: 20190417
  Serious: No
  Sender: FDA-Public Use
  Company Number: US-VIFOR (INTERNATIONAL) INC.-VIT-2018-10496

PATIENT
  Age: 78 Year
  Sex: Male
  Weight: 68.1 kg

DRUGS (13)
  1. CARBIDOPA. [Concomitant]
     Active Substance: CARBIDOPA
  2. ATENOLOL. [Concomitant]
     Active Substance: ATENOLOL
  3. VELTASSA [Suspect]
     Active Substance: PATIROMER
     Indication: BLOOD POTASSIUM INCREASED
     Route: 048
     Dates: start: 20181009
  4. VITAMIN D [Concomitant]
     Active Substance: CHOLECALCIFEROL
  5. L-METHYLFOLATE [Concomitant]
     Active Substance: LEVOMEFOLIC ACID
  6. AMLODIPINE [Concomitant]
     Active Substance: AMLODIPINE BESYLATE
  7. ATORVASTATIN [Concomitant]
     Active Substance: ATORVASTATIN
  8. VITAMIN B12 [Concomitant]
     Active Substance: CYANOCOBALAMIN
  9. LINZESS [Concomitant]
     Active Substance: LINACLOTIDE
     Indication: ABDOMINAL DISCOMFORT
  10. LEVOTHYROXINE. [Concomitant]
     Active Substance: LEVOTHYROXINE
  11. FOLIC ACID. [Concomitant]
     Active Substance: FOLIC ACID
  12. BABYASPIRIN [Concomitant]
  13. CALCIUM ACETATE. [Concomitant]
     Active Substance: CALCIUM ACETATE

REACTIONS (2)
  - Hypersomnia [Unknown]
  - Thirst [Unknown]

NARRATIVE: CASE EVENT DATE: 20181019
